FAERS Safety Report 6643065-9 (Version None)
Quarter: 2010Q1

REPORT INFORMATION
  Report Type: 
  Country: None (occurrence: None)
  Receive Date: 20100319
  Receipt Date: 20100305
  Transmission Date: 20100710
  Serious: Yes (Other)
  Sender: FDA-Public Use
  Company Number: PHHY2010US14273

PATIENT
  Sex: Male

DRUGS (4)
  1. RECLAST [Suspect]
     Dosage: UNK
     Route: 042
     Dates: start: 20091210
  2. VITAMIN D [Concomitant]
  3. CALCIUM [Concomitant]
  4. OTHERVITAMINS [Concomitant]

REACTIONS (8)
  - ARTHRALGIA [None]
  - KIDNEY INFECTION [None]
  - LIVER DISORDER [None]
  - MUSCULAR WEAKNESS [None]
  - MYALGIA [None]
  - PAIN IN EXTREMITY [None]
  - PARAESTHESIA [None]
  - RASH [None]
